FAERS Safety Report 6929284-2 (Version None)
Quarter: 2010Q3

REPORT INFORMATION
  Report Type: 
  Country: None (occurrence: None)
  Receive Date: 20100817
  Receipt Date: 20100804
  Transmission Date: 20110219
  Serious: Yes (Hospitalization)
  Sender: FDA-Public Use
  Company Number: GB-MYLANLABS-2010S1014128

PATIENT
  Age: 60 Year
  Sex: Female
  Weight: 89 kg

DRUGS (13)
  1. LANSOPRAZOLE [Suspect]
     Indication: PRODUCT USED FOR UNKNOWN INDICATION
  2. AZATHIOPRINE [Suspect]
     Indication: PRODUCT USED FOR UNKNOWN INDICATION
  3. OMEPRAZOLE [Suspect]
     Indication: PRODUCT USED FOR UNKNOWN INDICATION
  4. HAVRIX [Suspect]
     Indication: PROPHYLAXIS
     Dates: start: 20090121, end: 20090121
  5. PREDNISOLONE [Suspect]
     Indication: PRODUCT USED FOR UNKNOWN INDICATION
  6. PREDNISOLONE [Suspect]
  7. PREDNISOLONE [Suspect]
  8. PREDNISOLONE [Suspect]
  9. PREDNISOLONE [Suspect]
  10. PREDNISOLONE [Suspect]
  11. REVAXIS /00315001/ [Suspect]
     Indication: PROPHYLAXIS
     Route: 042
     Dates: start: 20090121, end: 20090121
  12. BENDROFLUMETHIAZIDE [Concomitant]
     Indication: HYPERTENSION
  13. PREMIQUE [Concomitant]

REACTIONS (9)
  - AUTOIMMUNE HEPATITIS [None]
  - BLOOD PRESSURE INCREASED [None]
  - CARBOHYDRATE ANTIGEN 19-9 INCREASED [None]
  - ERYTHEMA MULTIFORME [None]
  - IMMUNE SYSTEM DISORDER [None]
  - IMPAIRED WORK ABILITY [None]
  - INFECTIOUS MONONUCLEOSIS [None]
  - PERIPHERAL COLDNESS [None]
  - WEIGHT INCREASED [None]
